FAERS Safety Report 9328999 (Version 1)
Quarter: 2013Q2

REPORT INFORMATION
  Report Type: Spontaneous
  Country: US (occurrence: US)
  Receive Date: 20130604
  Receipt Date: 20130604
  Transmission Date: 20140414
  Serious: No
  Sender: FDA-Public Use
  Company Number: US-SANOFI-AVENTIS-2013SA040051

PATIENT
  Sex: 0

DRUGS (3)
  1. LANTUS [Suspect]
     Dosage: DOSE:12 UNIT(S)
     Route: 051
  2. LANTUS [Suspect]
     Dosage: DOSE:40 UNIT(S)
     Route: 051
  3. HUMALOG [Suspect]

REACTIONS (2)
  - Feeling abnormal [Unknown]
  - Wrong drug administered [Unknown]
